FAERS Safety Report 10200691 (Version 3)
Quarter: 2014Q3

REPORT INFORMATION
  Report Type: Spontaneous
  Country: AT (occurrence: AT)
  Receive Date: 20140528
  Receipt Date: 20140708
  Transmission Date: 20150326
  Serious: Yes (Hospitalization, Other)
  Sender: FDA-Public Use
  Company Number: AT-ALEXION PHARMACEUTICALS INC.-A201402019

PATIENT

DRUGS (29)
  1. DEPAKINE                           /00228501/ [Concomitant]
     Active Substance: VALPROIC ACID
     Indication: EPILEPSY
     Dosage: UNK, PRN
     Route: 048
     Dates: start: 20101105
  2. LASIX [Concomitant]
     Active Substance: FUROSEMIDE
     Indication: DYSPNOEA
     Dosage: UNK, PRN
     Route: 048
     Dates: start: 20111223, end: 20120703
  3. IMUREK                             /00001501/ [Concomitant]
     Active Substance: AZATHIOPRINE
     Indication: RENAL TRANSPLANT
     Dosage: UNK, PRN
     Route: 048
     Dates: start: 20120307, end: 20120313
  4. PANTOLOC                           /01263204/ [Concomitant]
     Indication: ULCER
     Dosage: UNK
     Route: 048
  5. ZITHROMAX [Concomitant]
     Active Substance: AZITHROMYCIN DIHYDRATE
     Indication: PROPHYLAXIS
     Dosage: UNK, PRN
     Route: 042
     Dates: start: 20120313, end: 20120313
  6. ZITHROMAX [Concomitant]
     Active Substance: AZITHROMYCIN DIHYDRATE
     Dosage: UNK
     Route: 042
     Dates: start: 20120509, end: 20120509
  7. VIBRAVENOS [Concomitant]
     Dosage: UNK, PRN
     Route: 048
     Dates: start: 20120616, end: 20120625
  8. SOLIRIS [Suspect]
     Active Substance: ECULIZUMAB
     Indication: HAEMOLYTIC URAEMIC SYNDROME
     Dosage: 900 MG, QMONTH
     Route: 042
     Dates: start: 20120313, end: 20120703
  9. AMLODIPINE [Concomitant]
     Active Substance: AMLODIPINE BESYLATE
     Indication: HYPERTENSION
     Dosage: UNK UNK, PRN
     Route: 048
  10. DEXAMETHASONE. [Concomitant]
     Active Substance: DEXAMETHASONE
     Dosage: UNK UNK, PRN
     Route: 042
     Dates: start: 20120509, end: 20120509
  11. DEXAMETHASONE. [Concomitant]
     Active Substance: DEXAMETHASONE
     Dosage: UNK UNK, PRN
     Route: 042
     Dates: start: 20120618, end: 20120618
  12. SOLIRIS [Suspect]
     Active Substance: ECULIZUMAB
     Indication: GLOMERULONEPHRITIS
  13. SOLIRIS [Suspect]
     Active Substance: ECULIZUMAB
     Indication: OFF LABEL USE
  14. BACTRIM [Concomitant]
     Active Substance: SULFAMETHOXAZOLE\TRIMETHOPRIM
     Indication: ANTIFUNGAL PROPHYLAXIS
     Dosage: UNK, PRN
     Route: 048
     Dates: start: 20120216, end: 20120703
  15. ZITHROMAX [Concomitant]
     Active Substance: AZITHROMYCIN DIHYDRATE
     Dosage: UNK
     Route: 042
     Dates: start: 20120411, end: 20120411
  16. DEXAMETHASONE. [Concomitant]
     Active Substance: DEXAMETHASONE
     Dosage: UNK
     Route: 042
     Dates: start: 20120411, end: 20120411
  17. MOVICOL [Concomitant]
     Active Substance: POLYETHYLENE GLYCOL 3350\POTASSIUM CHLORIDE\SODIUM BICARBONATE\SODIUM CHLORIDE
     Indication: CONSTIPATION
     Dosage: UNK, PRN
     Route: 048
     Dates: start: 20120616, end: 20120629
  18. SUPRESSIN [Concomitant]
     Indication: HYPERTENSION
     Dosage: UNK, PRN
     Route: 048
  19. IMUREK                             /00001501/ [Concomitant]
     Active Substance: AZATHIOPRINE
     Dosage: UNK, PRN
     Route: 048
     Dates: start: 20120515, end: 20120703
  20. ZITHROMAX [Concomitant]
     Active Substance: AZITHROMYCIN DIHYDRATE
     Dosage: UNK
     Route: 042
     Dates: start: 20120618, end: 20120618
  21. OPTIFIBRE [Concomitant]
     Indication: DIARRHOEA
     Dosage: UNK, PRN
     Route: 048
     Dates: start: 20120330, end: 20120403
  22. PREDNISOLONE. [Concomitant]
     Active Substance: PREDNISOLONE
     Indication: RENAL TRANSPLANT
     Dosage: UNK
     Route: 048
     Dates: start: 20100507
  23. URBASON                            /00049601/ [Concomitant]
     Active Substance: METHYLPREDNISOLONE
     Indication: TRANSPLANT REJECTION
     Dosage: UNK, PRN
     Route: 042
     Dates: start: 20120102, end: 20130107
  24. DEXAMETHASONE. [Concomitant]
     Active Substance: DEXAMETHASONE
     Indication: PRODUCT USED FOR UNKNOWN INDICATION
     Dosage: UNK UNK, PRN
     Route: 042
     Dates: start: 20120313, end: 20120313
  25. OPTINEM [Concomitant]
     Active Substance: MEROPENEM
     Indication: PYREXIA
     Dosage: UNK, PRN
     Route: 042
     Dates: start: 20120323, end: 20120330
  26. VIBRAVENOS [Concomitant]
     Indication: PNEUMONIA
     Dosage: UNK, PRN
     Route: 042
     Dates: start: 20120603, end: 20120615
  27. PREDNISOLONE. [Concomitant]
     Active Substance: PREDNISOLONE
     Indication: SARCOIDOSIS
  28. DIFFERIN [Concomitant]
     Active Substance: ADAPALENE
     Indication: ACNE
     Dosage: UNK, PRN
     Route: 048
     Dates: start: 20120326, end: 20120529
  29. PROGRAF [Concomitant]
     Active Substance: TACROLIMUS\TACROLIMUS ANHYDROUS
     Indication: RENAL TRANSPLANT
     Dosage: UNK, PRN
     Route: 048
     Dates: start: 20111223, end: 20120703

REACTIONS (18)
  - Renal impairment [Recovering/Resolving]
  - Urine output decreased [Unknown]
  - Transplant rejection [Recovering/Resolving]
  - Pneumonia [Unknown]
  - Renal function test abnormal [Unknown]
  - Off label use [Unknown]
  - Dyspnoea [Recovered/Resolved]
  - Inappropriate schedule of drug administration [Unknown]
  - Abscess [Unknown]
  - Fluid overload [Recovered/Resolved]
  - Infection [Recovering/Resolving]
  - Tendon rupture [Unknown]
  - Renal aneurysm [Unknown]
  - Blood creatinine increased [Recovering/Resolving]
  - Vision blurred [Recovering/Resolving]
  - Oedematous kidney [Unknown]
  - Hyperkalaemia [Recovered/Resolved]
  - Hydronephrosis [Recovering/Resolving]

NARRATIVE: CASE EVENT DATE: 201112
